FAERS Safety Report 7984110-8 (Version None)
Quarter: 2011Q4

REPORT INFORMATION
  Report Type: 
  Country: None (occurrence: None)
  Receive Date: 20111216
  Receipt Date: 20111213
  Transmission Date: 20120403
  Serious: No
  Sender: FDA-Public Use
  Company Number: US-PFIZER INC-2011303753

PATIENT
  Sex: Male
  Weight: 85 kg

DRUGS (5)
  1. INSULIN [Concomitant]
     Indication: DIABETES MELLITUS
     Dosage: UNK
  2. FLECTOR [Suspect]
     Indication: BURSITIS
     Dosage: UNK
     Route: 062
     Dates: start: 20111210
  3. FLECTOR [Suspect]
     Indication: BACK PAIN
  4. CORTISONE ACETATE [Suspect]
     Indication: NECK PAIN
     Dosage: UNK
  5. CORTISONE ACETATE [Suspect]
     Indication: ROTATOR CUFF SYNDROME

REACTIONS (1)
  - BLOOD GLUCOSE INCREASED [None]
